FAERS Safety Report 4642663-1 (Version None)
Quarter: 2005Q2

REPORT INFORMATION
  Report Type: 
  Country: None (occurrence: None)
  Receive Date: 20050420
  Receipt Date: 20050405
  Transmission Date: 20051028
  Serious: Yes (Other)
  Sender: FDA-Public Use
  Company Number: 2005-00150

PATIENT
  Age: 50 Year
  Sex: Male
  Weight: 68 kg

DRUGS (4)
  1. VELCADE [Suspect]
     Indication: MULTIPLE MYELOMA
     Dosage: 2.40 MG, 2/WEEK, IV BOLUS
     Route: 040
     Dates: start: 20041115, end: 20041230
  2. COVERSYL (PERINDOPRIL) [Concomitant]
  3. LERCAN (LERCANIDIPINE HYDROCHLORIDE) [Concomitant]
  4. ZOMETA [Concomitant]

REACTIONS (1)
  - HERPES ZOSTER OPHTHALMIC [None]
